FAERS Safety Report 14413157 (Version 2)
Quarter: 2018Q2

REPORT INFORMATION
  Report Type: Spontaneous
  Country: JP (occurrence: JP)
  Receive Date: 20180119
  Receipt Date: 20180402
  Transmission Date: 20180711
  Serious: Yes (Hospitalization, Other)
  Sender: FDA-Public Use
  Company Number: JP-MYLANLABS-2018M1004556

PATIENT
  Age: 71 Year
  Sex: Female

DRUGS (2)
  1. CARBOPLATIN. [Suspect]
     Active Substance: CARBOPLATIN
     Indication: OVARIAN CANCER RECURRENT
     Dosage: 550 MG/M2; HAD RECEIVED HER LAST COURSE TWO WEEKS EARLIER
     Route: 065
  2. PACLITAXEL NK [Suspect]
     Active Substance: PACLITAXEL
     Indication: OVARIAN CANCER RECURRENT
     Dosage: 270 MG/M2; HAD RECEIVED HER LAST COURSE TWO WEEKS EARLIER
     Route: 041

REACTIONS (2)
  - Mycobacterium avium complex infection [Unknown]
  - Pulmonary cavitation [Unknown]
